FAERS Safety Report 6051429-X (Version None)
Quarter: 2009Q1

REPORT INFORMATION
  Report Type: 
  Country: None (occurrence: None)
  Receive Date: 20090121
  Receipt Date: 20090121
  Transmission Date: 20090719
  Serious: Yes (Life-Threatening, Hospitalization)
  Sender: FDA-Public Use
  Company Number: None

PATIENT
  Sex: Male
  Weight: 66 kg

DRUGS (4)
  1. ACYCLOVIR SODIUM [Suspect]
     Indication: ENCEPHALITIS HERPES
     Dosage: 560 MG/11.2 ML NOW IV
     Route: 042
     Dates: start: 20090111
  2. DEXTROSE 5% AND 75 MEQ SODIUM BICARB AT 125ML/HR [Concomitant]
  3. . [Concomitant]
  4. SODIUM CHLORIDE 0.9% AT 60ML/HR [Concomitant]

REACTIONS (1)
  - RENAL FAILURE ACUTE [None]
